FAERS Safety Report 7209721-9 (Version None)
Quarter: 2011Q1

REPORT INFORMATION
  Report Type: 
  Country: None (occurrence: None)
  Receive Date: 20110104
  Receipt Date: 20101231
  Transmission Date: 20110831
  Serious: Yes (Death)
  Sender: FDA-Public Use
  Company Number: US-ASTRAZENECA-2011SE00031

PATIENT
  Age: 42 Year
  Sex: Female

DRUGS (7)
  1. VERAPAMIL [Suspect]
     Dosage: 30
     Route: 048
  2. CLONAZEPAM [Concomitant]
  3. DIHYDROMORPHINE [Concomitant]
  4. ETHANOL [Suspect]
     Dosage: UNKNOWN
     Route: 048
  5. QUETIAPINE [Suspect]
     Dosage: 20
     Route: 048
  6. BUTALBITAL [Concomitant]
  7. AMITRIPTYLINE [Concomitant]

REACTIONS (4)
  - TOXICITY TO VARIOUS AGENTS [None]
  - SOMNOLENCE [None]
  - COMPLETED SUICIDE [None]
  - CARDIO-RESPIRATORY ARREST [None]
